FAERS Safety Report 18695243 (Version 1)
Quarter: 2021Q1

REPORT INFORMATION
  Report Type: Report from Study
  Country: CA (occurrence: CA)
  Receive Date: 20210104
  Receipt Date: 20210104
  Transmission Date: 20210419
  Serious: Yes (Other)
  Sender: FDA-Public Use
  Company Number: CA-PFIZER INC-2020518349

PATIENT
  Sex: Male

DRUGS (9)
  1. METHOTREXATE SODIUM. [Suspect]
     Active Substance: METHOTREXATE SODIUM
  2. PREDNISONE. [Concomitant]
     Active Substance: PREDNISONE
     Dosage: 5 DF
  3. DESOXIMETASONE. [Concomitant]
     Active Substance: DESOXIMETASONE
  4. ERELZI [Suspect]
     Active Substance: ETANERCEPT-SZZS
     Indication: RHEUMATOID ARTHRITIS
     Dosage: 50 MG, ONCE WEEKLY
     Route: 058
  5. TYLENOL [Concomitant]
     Active Substance: ACETAMINOPHEN
  6. SULFASALAZINE. [Suspect]
     Active Substance: SULFASALAZINE
  7. IBUPROFEN. [Concomitant]
     Active Substance: IBUPROFEN
  8. HYDROXYCHLOROQUINE [Suspect]
     Active Substance: HYDROXYCHLOROQUINE
  9. PLAQUENIL [Concomitant]
     Active Substance: HYDROXYCHLOROQUINE SULFATE

REACTIONS (9)
  - Pulmonary toxicity [Unknown]
  - Musculoskeletal stiffness [Unknown]
  - Illness [Unknown]
  - Mobility decreased [Unknown]
  - Inflammation [Unknown]
  - General physical health deterioration [Unknown]
  - Pain [Unknown]
  - Therapeutic response decreased [Unknown]
  - Dyspnoea [Unknown]
